FAERS Safety Report 13401297 (Version 2)
Quarter: 2017Q2

REPORT INFORMATION
  Report Type: Spontaneous
  Country: US (occurrence: US)
  Receive Date: 20170404
  Receipt Date: 20170413
  Transmission Date: 20170830
  Serious: Yes (Hospitalization)
  Sender: FDA-Public Use
  Company Number: US-ALLERGAN-1703128US

PATIENT
  Age: 27 Year
  Sex: Male
  Weight: 141.8 kg

DRUGS (1)
  1. VRAYLAR [Suspect]
     Active Substance: CARIPRAZINE
     Indication: PSYCHOTIC DISORDER
     Dosage: 3 MG, QD
     Route: 048
     Dates: start: 20161227, end: 20170123

REACTIONS (4)
  - Blepharospasm [Not Recovered/Not Resolved]
  - Substance use [Unknown]
  - Frostbite [Unknown]
  - Treatment noncompliance [Unknown]
